FAERS Safety Report 17547075 (Version 1)
Quarter: 2020Q1

REPORT INFORMATION
  Report Type: Spontaneous
  Country: DE (occurrence: DE)
  Receive Date: 20200316
  Receipt Date: 20200316
  Transmission Date: 20200409
  Serious: Yes (Life-Threatening)
  Sender: FDA-Public Use
  Company Number: NVSC2020DE072121

PATIENT
  Sex: Male

DRUGS (2)
  1. VOLTAREN RESINAT [Suspect]
     Active Substance: DICLOFENAC
     Indication: OSTEOPOROSIS
     Dosage: UNK UNK, QD (4 TO 6 YEARS AGO)
     Route: 065
  2. VOLTAREN RESINAT [Suspect]
     Active Substance: DICLOFENAC
     Indication: PAIN

REACTIONS (3)
  - Incisional hernia [Unknown]
  - Haemorrhage [Unknown]
  - Coma [Unknown]
